FAERS Safety Report 26114555 (Version 1)
Quarter: 2025Q4

REPORT INFORMATION
  Report Type: Other
  Country: US (occurrence: US)
  Receive Date: 20251202
  Receipt Date: 20251202
  Transmission Date: 20260118
  Serious: Yes (Hospitalization, Other)
  Sender: AIRGAS
  Company Number: US-LHC-2024006172

PATIENT
  Age: 26 Year
  Sex: Male

DRUGS (1)
  1. NITROUS OXIDE [Suspect]
     Active Substance: NITROUS OXIDE
     Indication: Product used for unknown indication

REACTIONS (3)
  - Deep vein thrombosis [Recovering/Resolving]
  - Subacute combined cord degeneration [Recovering/Resolving]
  - Cold burn [Unknown]
